FAERS Safety Report 4614729-3 (Version None)
Quarter: 2005Q2

REPORT INFORMATION
  Report Type: 
  Country: None (occurrence: None)
  Receive Date: 20050310
  Receipt Date: 20041220
  Transmission Date: 20051028
  Serious: Yes (Other)
  Sender: FDA-Public Use
  Company Number: A03200404286

PATIENT
  Sex: Male

DRUGS (3)
  1. ELOXATIN - OXAPLATIN - SOLUTION [Suspect]
     Indication: COLON CANCER
     Dosage: 80 MG/M2 Q2W - INTRAVENOUS NOS
     Route: 042
     Dates: start: 20041122, end: 20041122
  2. FLUOROURACIL [Concomitant]
  3. LEUCOVORIN [Concomitant]

REACTIONS (3)
  - DYSPNOEA [None]
  - PULMONARY EOSINOPHILIA [None]
  - PULMONARY FIBROSIS [None]
